FAERS Safety Report 13781253 (Version 1)
Quarter: 2017Q3

REPORT INFORMATION
  Report Type: Spontaneous
  Country: US (occurrence: US)
  Receive Date: 20170723
  Receipt Date: 20170723
  Transmission Date: 20171127
  Serious: Yes (Other)
  Sender: FDA-Public Use
  Company Number: None

PATIENT
  Age: 53 Year
  Sex: Female
  Weight: 83.25 kg

DRUGS (1)
  1. SUBOXONE [Suspect]
     Active Substance: BUPRENORPHINE HYDROCHLORIDE\NALOXONE HYDROCHLORIDE
     Indication: DEPENDENCE
     Dosage: ?          OTHER STRENGTH:MG;QUANTITY:1.5 1.5;?
     Route: 060
     Dates: start: 20170430, end: 20170430

REACTIONS (3)
  - Discomfort [None]
  - Hypersensitivity [None]
  - Pain [None]

NARRATIVE: CASE EVENT DATE: 20170430
